FAERS Safety Report 8590227-X (Version None)
Quarter: 2012Q3

REPORT INFORMATION
  Report Type: 
  Country: None (occurrence: None)
  Receive Date: 20120813
  Receipt Date: 20120801
  Transmission Date: 20120928
  Serious: Yes (Death, Hospitalization, Other)
  Sender: FDA-Public Use
  Company Number: FR-BRISTOL-MYERS SQUIBB COMPANY-16836280

PATIENT
  Age: 50 Year
  Sex: Male

DRUGS (8)
  1. ALPHACALCIDOL [Concomitant]
  2. ZOLPIDEM [Concomitant]
  3. ASPIRIN [Concomitant]
     Dosage: FORM: KARDEGIC 75
  4. PROCORALAN [Concomitant]
     Dosage: 1 DF= 1.5 UNITNOS. FORM: PROCORALAN 5
  5. COUMADIN [Suspect]
     Indication: ATRIAL FIBRILLATION
     Dosage: SCORED TABS. INTERRUPTED ON 20JUN12, RESUMED FROM 23JUN-2JUL12
     Route: 048
     Dates: start: 20111201
  6. FUROSEMIDE [Concomitant]
     Dosage: 1 DF= 4 TABS. FORM: 20
  7. RAMIPRIL [Concomitant]
     Dosage: FORM:5MG
  8. SPIRONOLACTONE [Concomitant]
     Dosage: FORM: SPIRONOLACTONE 50

REACTIONS (8)
  - OEDEMA PERIPHERAL [None]
  - INTERNATIONAL NORMALISED RATIO INCREASED [None]
  - FAECES DISCOLOURED [None]
  - FALL [None]
  - DEATH [None]
  - ANAEMIA [None]
  - EPISTAXIS [None]
  - SEPSIS [None]
